FAERS Safety Report 4893799-1 (Version None)
Quarter: 2006Q1

REPORT INFORMATION
  Report Type: 
  Country: None (occurrence: None)
  Receive Date: 20060127
  Receipt Date: 20051130
  Transmission Date: 20060701
  Serious: Yes (Life-Threatening)
  Sender: FDA-Public Use
  Company Number: 2005AP06212

PATIENT
  Age: 61 Year
  Sex: Female

DRUGS (4)
  1. PROPOFOL [Suspect]
     Indication: GENERAL ANAESTHESIA
     Route: 042
     Dates: start: 20000301
  2. SUXAMETHONIUM CHLORIDE [Concomitant]
     Indication: HYPOTONIA
     Dates: start: 20000301
  3. CHLORPROMAZINE HCL [Concomitant]
  4. FLUPHENAZINE HCL [Concomitant]

REACTIONS (6)
  - BLOOD PRESSURE IMMEASURABLE [None]
  - ELECTROCARDIOGRAM ST SEGMENT ELEVATION [None]
  - GRAND MAL CONVULSION [None]
  - RESPIRATORY ARREST [None]
  - VENTRICULAR HYPOKINESIA [None]
  - VENTRICULAR TACHYCARDIA [None]
